FAERS Safety Report 4547263-X (Version None)
Quarter: 2005Q1

REPORT INFORMATION
  Report Type: 
  Country: None (occurrence: None)
  Receive Date: 20050105
  Receipt Date: 20041216
  Transmission Date: 20050727
  Serious: Yes (Other)
  Sender: FDA-Public Use
  Company Number: USA041286404

PATIENT
  Age: 39 Year
  Sex: Female

DRUGS (4)
  1. CYMBALTA [Suspect]
     Indication: DEPRESSION
     Dosage: 60 MG DAY
  2. SEROQUEL [Concomitant]
  3. XANAX (ALPRAZOLAM DUM) [Concomitant]
  4. LORTAB [Concomitant]

REACTIONS (6)
  - AMNESIA [None]
  - COGNITIVE DISORDER [None]
  - FALL [None]
  - LOSS OF CONSCIOUSNESS [None]
  - MEDICATION ERROR [None]
  - SPEECH DISORDER [None]
